FAERS Safety Report 8079648-1 (Version None)
Quarter: 2012Q1

REPORT INFORMATION
  Report Type: 
  Country: None (occurrence: None)
  Receive Date: 20120128
  Receipt Date: 20110801
  Transmission Date: 20120608
  Serious: No
  Sender: FDA-Public Use
  Company Number: US-ABBOTT-11P-163-0843434-00

PATIENT
  Sex: Female
  Weight: 90.8 kg

DRUGS (7)
  1. LOSARTAN POTASSIUM [Concomitant]
     Indication: HYPERTENSION
  2. HYDROCHLOROTHIAZIDE [Concomitant]
     Indication: HYPERTENSION
  3. LEXAPRO [Concomitant]
     Indication: DEPRESSION
  4. SEASONALE [Concomitant]
     Indication: ORAL CONTRACEPTION
  5. ENTOCORT EC [Concomitant]
     Indication: CROHN'S DISEASE
  6. COLAZAL [Concomitant]
     Indication: CROHN'S DISEASE
  7. HUMIRA [Suspect]
     Indication: CROHN'S DISEASE
     Dates: start: 20110701

REACTIONS (2)
  - WRONG TECHNIQUE IN DRUG USAGE PROCESS [None]
  - INCORRECT ROUTE OF DRUG ADMINISTRATION [None]
